FAERS Safety Report 12831452 (Version 4)
Quarter: 2017Q1

REPORT INFORMATION
  Report Type: Spontaneous
  Country: JP (occurrence: JP)
  Receive Date: 20161009
  Receipt Date: 20170307
  Transmission Date: 20170428
  Serious: Yes (Hospitalization)
  Sender: FDA-Public Use
  Company Number: JP-ABBVIE-16P-087-1748692-00

PATIENT
  Age: 12 Year
  Sex: Male
  Weight: 50.6 kg

DRUGS (11)
  1. BRUFEN [Concomitant]
     Active Substance: IBUPROFEN
     Indication: JUVENILE IDIOPATHIC ARTHRITIS
     Route: 048
     Dates: start: 20120210, end: 20130917
  2. HUMIRA [Suspect]
     Active Substance: ADALIMUMAB
     Indication: JUVENILE IDIOPATHIC ARTHRITIS
     Route: 058
     Dates: start: 20140109
  3. SODIUM GUALENATE HYDRATE/L-GLUTAMINE [Concomitant]
     Indication: PROPHYLAXIS
     Route: 048
     Dates: start: 20120125, end: 20130917
  4. BRUFEN [Concomitant]
     Active Substance: IBUPROFEN
     Dates: start: 20140611, end: 20140820
  5. SODIUM GUALENATE HYDRATE/L-GLUTAMINE [Concomitant]
     Dates: start: 20130918, end: 20140819
  6. MONTELUKAST SODIUM. [Concomitant]
     Active Substance: MONTELUKAST SODIUM
     Indication: PRODUCT USED FOR UNKNOWN INDICATION
     Route: 048
     Dates: start: 20120316, end: 20160412
  7. MONTELUKAST SODIUM. [Concomitant]
     Active Substance: MONTELUKAST SODIUM
  8. BRUFEN [Concomitant]
     Active Substance: IBUPROFEN
     Dates: start: 20130918, end: 20140610
  9. METOLATE [Concomitant]
     Active Substance: METHOTREXATE
     Indication: JUVENILE IDIOPATHIC ARTHRITIS
     Route: 048
     Dates: start: 20131109
  10. FOLIC ACID. [Concomitant]
     Active Substance: FOLIC ACID
     Route: 048
     Dates: start: 20120815
  11. FOLIC ACID. [Concomitant]
     Active Substance: FOLIC ACID
     Indication: PROPHYLAXIS
     Route: 048
     Dates: start: 20120604, end: 20120814

REACTIONS (3)
  - Type 1 diabetes mellitus [Recovering/Resolving]
  - Weight decreased [Unknown]
  - Blood glucose fluctuation [Unknown]

NARRATIVE: CASE EVENT DATE: 20161005
